FAERS Safety Report 14750638 (Version 6)
Quarter: 2018Q4

REPORT INFORMATION
  Report Type: Spontaneous
  Country: US (occurrence: US)
  Receive Date: 20180412
  Receipt Date: 20181231
  Transmission Date: 20190204
  Serious: No
  Sender: FDA-Public Use
  Company Number: US-PFIZER INC-2018148147

PATIENT
  Age: 68 Year
  Sex: Female
  Weight: 59 kg

DRUGS (8)
  1. LYRICA [Suspect]
     Active Substance: PREGABALIN
     Indication: FIBROMYALGIA
     Dosage: 50 MG, 3X/DAY
  2. FIORICET [Concomitant]
     Active Substance: ACETAMINOPHEN\BUTALBITAL\CAFFEINE
     Indication: MIGRAINE
     Dosage: UNK, (UP TO 4 TIMES A DAY)
  3. RESTORIL [Concomitant]
     Active Substance: TEMAZEPAM
     Indication: SLEEP DISORDER
     Dosage: 10 MG, 1X/DAY (10 MG ONCE A NIGHT)
  4. LYRICA [Suspect]
     Active Substance: PREGABALIN
     Indication: PRURITUS
     Dosage: 100 MG, 2X/DAY
     Route: 048
  5. LYRICA [Suspect]
     Active Substance: PREGABALIN
     Indication: POLYNEUROPATHY
     Dosage: 200 MG, DAILY (2 TABS IN THE MORNING; 1 TAB IN THE AFTERNOON; 1 TAB AT BEDTIME)
  6. LORTAB [Concomitant]
     Active Substance: ACETAMINOPHEN\HYDROCODONE BITARTRATE
     Indication: PAIN
     Dosage: 0.5 MG, UNK (0.5 MG UP TO 3 TIMES A DAY)
  7. LYRICA [Suspect]
     Active Substance: PREGABALIN
     Indication: SMALL FIBRE NEUROPATHY
     Dosage: 200 MG, 2X/DAY [50MG-2 CAPSULES IN THE MORNING AND 2 CAPSULES IN THE NIGHT]
     Route: 048
     Dates: start: 201705
  8. LORTAB [Concomitant]
     Active Substance: ACETAMINOPHEN\HYDROCODONE BITARTRATE
     Indication: FIBROMYALGIA
     Dosage: 0.5 MG, AS NEEDED [UP TO TWICE DAILY]
     Route: 048

REACTIONS (21)
  - Body tinea [Unknown]
  - Skin disorder [Unknown]
  - Influenza [Unknown]
  - Pain [Unknown]
  - Rash erythematous [Unknown]
  - Fatigue [Unknown]
  - Oral disorder [Not Recovered/Not Resolved]
  - Dysphonia [Unknown]
  - Urticaria [Recovered/Resolved]
  - Headache [Not Recovered/Not Resolved]
  - Therapeutic response unexpected [Unknown]
  - Bone disorder [Unknown]
  - Weight decreased [Not Recovered/Not Resolved]
  - Insomnia [Unknown]
  - Pre-existing condition improved [Unknown]
  - Pain in extremity [Unknown]
  - Hunger [Not Recovered/Not Resolved]
  - Arthralgia [Unknown]
  - Rash [Recovering/Resolving]
  - Speech disorder [Unknown]
  - Feeling abnormal [Unknown]

NARRATIVE: CASE EVENT DATE: 20181205
